FAERS Safety Report 17065479 (Version 1)
Quarter: 2019Q4

REPORT INFORMATION
  Report Type: Spontaneous
  Country: US (occurrence: US)
  Receive Date: 20191122
  Receipt Date: 20191122
  Transmission Date: 20200122
  Serious: Yes (Other)
  Sender: FDA-Public Use
  Company Number: None

PATIENT
  Age: 88 Year
  Sex: Male
  Weight: 130.95 kg

DRUGS (14)
  1. ABIRATERONE. [Suspect]
     Active Substance: ABIRATERONE ACETATE
     Indication: BONE CANCER
     Dates: start: 20190702, end: 20191122
  2. ATORVASTATIN [Concomitant]
     Active Substance: ATORVASTATIN
  3. METOPROLOL. [Concomitant]
     Active Substance: METOPROLOL
  4. PREDNISONE. [Concomitant]
     Active Substance: PREDNISONE
  5. ALLOPURINOL. [Concomitant]
     Active Substance: ALLOPURINOL
  6. GLIPIZIDE. [Concomitant]
     Active Substance: GLIPIZIDE
  7. ABIRATERONE. [Suspect]
     Active Substance: ABIRATERONE ACETATE
     Indication: PROSTATE CANCER
     Dates: start: 20190702, end: 20191122
  8. ELIGORD [Concomitant]
  9. ELIQUIS [Concomitant]
     Active Substance: APIXABAN
  10. FLOMAX [Concomitant]
     Active Substance: TAMSULOSIN HYDROCHLORIDE
  11. CENTRUM [Concomitant]
     Active Substance: VITAMINS
  12. LOSARTAN. [Concomitant]
     Active Substance: LOSARTAN
  13. DILTIAZEM. [Concomitant]
     Active Substance: DILTIAZEM
  14. TORSEMIDE. [Concomitant]
     Active Substance: TORSEMIDE

REACTIONS (1)
  - Prostatic specific antigen increased [None]

NARRATIVE: CASE EVENT DATE: 20191122
